FAERS Safety Report 7667579-8 (Version None)
Quarter: 2011Q3

REPORT INFORMATION
  Report Type: 
  Country: None (occurrence: None)
  Receive Date: 20110806
  Receipt Date: 20110516
  Transmission Date: 20111222
  Serious: No
  Sender: FDA-Public Use
  Company Number: US-ABBOTT-11P-163-0726313-00

PATIENT
  Sex: Female
  Weight: 54.026 kg

DRUGS (9)
  1. VIVELLE [Concomitant]
     Indication: OESTROGEN REPLACEMENT THERAPY
  2. ASPIRIN [Concomitant]
     Indication: CARDIAC DISORDER
  3. LOSARTAN/HYDROCHLOORTHIAZIDE [Concomitant]
     Indication: HYPERTENSION
  4. CENTRUM SILVER [Concomitant]
     Indication: VITAMIN SUPPLEMENTATION
  5. LEVOXYL [Concomitant]
     Indication: THYROID DISORDER
  6. FENOFIBRATE [Concomitant]
     Indication: BLOOD CHOLESTEROL INCREASED
  7. VAGIFEM [Concomitant]
     Indication: VULVOVAGINAL DRYNESS
  8. FISH OIL [Concomitant]
     Indication: MINERAL SUPPLEMENTATION
  9. NIASPAN [Suspect]
     Indication: ARTERIAL OCCLUSIVE DISEASE
     Route: 048
     Dates: start: 20110309, end: 20110516

REACTIONS (2)
  - PARAESTHESIA [None]
  - FEELING HOT [None]
